FAERS Safety Report 8475557-4 (Version None)
Quarter: 2012Q2

REPORT INFORMATION
  Report Type: 
  Country: None (occurrence: None)
  Receive Date: 20120628
  Receipt Date: 20120625
  Transmission Date: 20120825
  Serious: Yes (Other)
  Sender: FDA-Public Use
  Company Number: US-ROCHE-784291

PATIENT
  Sex: Male
  Weight: 81.72 kg

DRUGS (3)
  1. ACCUTANE [Suspect]
     Route: 065
     Dates: start: 19930101, end: 19931201
  2. ACCUTANE [Suspect]
     Route: 065
     Dates: start: 19940616, end: 19940825
  3. ACCUTANE [Suspect]
     Indication: ACNE
     Route: 065
     Dates: start: 19911001, end: 19920301

REACTIONS (3)
  - INFLAMMATORY BOWEL DISEASE [None]
  - STRESS [None]
  - COLITIS ULCERATIVE [None]
